FAERS Safety Report 4296800-1 (Version None)
Quarter: 2004Q1

REPORT INFORMATION
  Report Type: 
  Country: None (occurrence: None)
  Receive Date: 20040126
  Receipt Date: 20030905
  Transmission Date: 20041129
  Serious: No
  Sender: FDA-Public Use
  Company Number: USA030946417

PATIENT
  Age: 62 Year
  Sex: Female

DRUGS (10)
  1. STRATTERA [Suspect]
     Dosage: 25 MG/2 DAY
     Dates: start: 20030901
  2. SYNTHROID [Concomitant]
  3. SINGULAR (MONTELUKAST SODIUM) [Concomitant]
  4. VITAMIN E [Concomitant]
  5. ARTHROTEC [Concomitant]
  6. KLONOPIN [Concomitant]
  7. SEREVENT [Concomitant]
  8. DERMAVITE [Concomitant]
  9. EASPRIN (ACETYLSALICYLIC ACID) [Concomitant]
  10. PROZACA(FLUOXETINE HYDROCHLORIDE) [Concomitant]

REACTIONS (5)
  - DIZZINESS [None]
  - FATIGUE [None]
  - GASTROOESOPHAGEAL REFLUX DISEASE [None]
  - IRRITABLE BOWEL SYNDROME [None]
  - SOMNOLENCE [None]
